FAERS Safety Report 5473414-9 (Version None)
Quarter: 2007Q4

REPORT INFORMATION
  Report Type: 
  Country: None (occurrence: None)
  Receive Date: 20071001
  Receipt Date: 20070921
  Transmission Date: 20080405
  Serious: Yes (Other)
  Sender: FDA-Public Use
  Company Number: GB-BAUSCH-2007BL003453

PATIENT
  Age: 42 Year
  Sex: Male

DRUGS (4)
  1. TOBRAMYCIN [Suspect]
     Indication: ANTI-INFECTIVE THERAPY
     Route: 042
     Dates: start: 20030601, end: 20030601
  2. COTRIM [Concomitant]
     Indication: ANTI-INFECTIVE THERAPY
     Route: 042
     Dates: start: 20030601
  3. COLOMYCIN [Concomitant]
     Indication: ANTI-INFECTIVE THERAPY
     Route: 042
     Dates: start: 20030601
  4. DICLOFENAC [Concomitant]
     Indication: PLEURITIC PAIN
     Dates: start: 20030601, end: 20030601

REACTIONS (1)
  - RENAL FAILURE ACUTE [None]
